FAERS Safety Report 9849743 (Version 1)
Quarter: 2014Q1

REPORT INFORMATION
  Report Type: Spontaneous
  Country: US (occurrence: None)
  Receive Date: 20140124
  Receipt Date: 20140124
  Transmission Date: 20141002
  Serious: Yes (Death)
  Sender: FDA-Public Use
  Company Number: 2014STPI000012

PATIENT
  Age: 62 Year
  Sex: Female

DRUGS (1)
  1. MATULANE (PROCARBAZINE HYDROCHLORIDE) CAPSULE, 50MG [Suspect]
     Indication: CENTRAL NERVOUS SYSTEM LYMPHOMA
     Route: 048
     Dates: start: 20131018, end: 2014

REACTIONS (1)
  - Death [None]
